FAERS Safety Report 17876522 (Version 1)
Quarter: 2020Q2

REPORT INFORMATION
  Report Type: Report from Study
  Country: US (occurrence: US)
  Receive Date: 20200609
  Receipt Date: 20200609
  Transmission Date: 20200714
  Serious: Yes (Death)
  Sender: FDA-Public Use
  Company Number: US-TAKEDA-2020TUS017840

PATIENT
  Sex: Female

DRUGS (1)
  1. PONATINIB [Suspect]
     Active Substance: PONATINIB
     Indication: CHRONIC MYELOID LEUKAEMIA
     Dosage: 15 MILLIGRAM, QD
     Route: 048
     Dates: start: 202004

REACTIONS (7)
  - Bone pain [Unknown]
  - Dyspnoea [Unknown]
  - Death [Fatal]
  - Pain [Unknown]
  - Hypoaesthesia [Unknown]
  - Palpitations [Unknown]
  - Chest pain [Unknown]
